FAERS Safety Report 6842923-X (Version None)
Quarter: 2010Q3

REPORT INFORMATION
  Report Type: 
  Country: None (occurrence: None)
  Receive Date: 20100714
  Receipt Date: 20070918
  Transmission Date: 20110219
  Serious: No
  Sender: FDA-Public Use
  Company Number: US-PFIZER INC-2007066384

PATIENT
  Sex: Male
  Weight: 109.3 kg

DRUGS (3)
  1. CHANTIX [Suspect]
     Indication: NICOTINE DEPENDENCE
     Route: 048
     Dates: start: 20070101
  2. TRAMADOL [Concomitant]
  3. CYMBALTA [Concomitant]

REACTIONS (1)
  - MOUTH HAEMORRHAGE [None]
